FAERS Safety Report 12668548 (Version 1)
Quarter: 2016Q3

REPORT INFORMATION
  Report Type: Spontaneous
  Country: IT (occurrence: DE)
  Receive Date: 20160819
  Receipt Date: 20160819
  Transmission Date: 20161109
  Serious: Yes (Other)
  Sender: FDA-Public Use
  Company Number: IT-009507513-1608DEU010236

PATIENT
  Age: 15 Year
  Sex: Male

DRUGS (6)
  1. TIMOLOL MALEATE. [Suspect]
     Active Substance: TIMOLOL MALEATE
     Indication: DEVELOPMENTAL GLAUCOMA
     Route: 047
  2. ACETAZOLAMIDE. [Suspect]
     Active Substance: ACETAZOLAMIDE
     Indication: PRODUCT USED FOR UNKNOWN INDICATION
  3. TRUSOPT [Suspect]
     Active Substance: DORZOLAMIDE HYDROCHLORIDE
     Indication: DEVELOPMENTAL GLAUCOMA
     Route: 047
  4. LATANOPROST. [Suspect]
     Active Substance: LATANOPROST
  5. BRIMONIDINE TARTRATE. [Suspect]
     Active Substance: BRIMONIDINE TARTRATE
     Indication: PRODUCT USED FOR UNKNOWN INDICATION
  6. TRAVOPROST [Suspect]
     Active Substance: TRAVOPROST
     Indication: PRODUCT USED FOR UNKNOWN INDICATION

REACTIONS (6)
  - Retinal detachment [Unknown]
  - Blindness [Unknown]
  - Myopia [Unknown]
  - Trabeculectomy [Unknown]
  - Scleral buckling surgery [Unknown]
  - Drug ineffective [Unknown]
